FAERS Safety Report 14545001 (Version 1)
Quarter: 2018Q1

REPORT INFORMATION
  Report Type: Spontaneous
  Country: DE (occurrence: DE)
  Receive Date: 20180217
  Receipt Date: 20180217
  Transmission Date: 20180509
  Serious: Yes (Hospitalization)
  Sender: FDA-Public Use
  Company Number: DE-MYLANLABS-2018M1010455

PATIENT
  Sex: Female

DRUGS (2)
  1. CORTISONE [Concomitant]
     Active Substance: CORTISONE\HYDROCORTISONE
     Indication: PRODUCT USED FOR UNKNOWN INDICATION
     Dosage: THERAPY START IN LAST YEAR
  2. METHOTREXATE. [Suspect]
     Active Substance: METHOTREXATE
     Indication: PRODUCT USED FOR UNKNOWN INDICATION
     Dosage: TREATMENT WITH METHOTREXATE SINCE 15 YEARS - LAST DOSE BEFORE AE ONSET WAS 20 MILLIGRAM
     Route: 058

REACTIONS (3)
  - Blood test abnormal [Recovered/Resolved]
  - Rheumatoid lung [Recovered/Resolved]
  - Cardiac disorder [Recovered/Resolved]
